FAERS Safety Report 6084584-6 (Version None)
Quarter: 2009Q1

REPORT INFORMATION
  Report Type: 
  Country: None (occurrence: None)
  Receive Date: 20090204
  Receipt Date: 20080506
  Transmission Date: 20090719
  Serious: No
  Sender: FDA-Public Use
  Company Number: 274009

PATIENT
  Age: 24 Year
  Sex: Female

DRUGS (1)
  1. NOVOLOG [Suspect]
     Indication: TYPE 1 DIABETES MELLITUS
     Dosage: 31 LU, SUBCUTANEOUS
     Route: 058

REACTIONS (5)
  - BLOOD GLUCOSE INCREASED [None]
  - FEELING ABNORMAL [None]
  - HEADACHE [None]
  - NAUSEA [None]
  - VOMITING [None]
